FAERS Safety Report 9037296 (Version 2)
Quarter: 2013Q2

REPORT INFORMATION
  Report Type: Spontaneous
  Country: US (occurrence: None)
  Receive Date: 20130115
  Receipt Date: 20130603
  Transmission Date: 20140414
  Serious: Yes (Other)
  Sender: FDA-Public Use
  Company Number: A1007931A

PATIENT
  Age: 57 Year
  Sex: Female

DRUGS (1)
  1. METHYLCELLULOSE [Suspect]
     Route: 048

REACTIONS (4)
  - Choking sensation [None]
  - Pharyngeal injury [None]
  - Product quality issue [None]
  - Product physical issue [None]
